FAERS Safety Report 10912481 (Version 1)
Quarter: 2015Q1

REPORT INFORMATION
  Report Type: Report from Study
  Country: US (occurrence: US)
  Receive Date: 20150313
  Receipt Date: 20150313
  Transmission Date: 20150721
  Serious: Yes (Other)
  Sender: FDA-Public Use
  Company Number: US-AMGEN-USASL2015023011

PATIENT
  Age: 46 Year
  Sex: Female

DRUGS (1)
  1. ENBREL [Suspect]
     Active Substance: ETANERCEPT
     Indication: RHEUMATOID ARTHRITIS
     Dosage: 50 MG, QWK
     Route: 058
     Dates: start: 1998, end: 201503

REACTIONS (7)
  - Rheumatoid arthritis [Not Recovered/Not Resolved]
  - Foot operation [Unknown]
  - Spinal fusion surgery [Unknown]
  - Blister [Not Recovered/Not Resolved]
  - Limb operation [Unknown]
  - Lower limb fracture [Unknown]
  - Drug effect decreased [Unknown]

NARRATIVE: CASE EVENT DATE: 2008
